FAERS Safety Report 19905913 (Version 1)
Quarter: 2021Q4

REPORT INFORMATION
  Report Type: Spontaneous
  Country: US (occurrence: US)
  Receive Date: 20211001
  Receipt Date: 20211001
  Transmission Date: 20220303
  Serious: Yes (Disabling)
  Sender: FDA-Public Use
  Company Number: None

PATIENT
  Age: 66 Year
  Sex: Female
  Weight: 72 kg

DRUGS (4)
  1. LEVOFLOXACIN [Suspect]
     Active Substance: LEVOFLOXACIN
     Indication: Post procedural infection
     Route: 048
     Dates: start: 20200401, end: 20210405
  2. COLESEVELAM [Concomitant]
     Active Substance: COLESEVELAM
  3. FUROSEMIDE [Concomitant]
     Active Substance: FUROSEMIDE
  4. HERBALS\TURMERIC [Concomitant]
     Active Substance: HERBALS\TURMERIC

REACTIONS (10)
  - Pyrexia [None]
  - Loss of consciousness [None]
  - Asthenia [None]
  - Dizziness [None]
  - Tinnitus [None]
  - Tendon pain [None]
  - Arthralgia [None]
  - Burning sensation [None]
  - Feeling abnormal [None]
  - Vitreous detachment [None]

NARRATIVE: CASE EVENT DATE: 20200529
